FAERS Safety Report 5558336-7 (Version None)
Quarter: 2007Q4

REPORT INFORMATION
  Report Type: 
  Country: None (occurrence: None)
  Receive Date: 20071214
  Receipt Date: 20071203
  Transmission Date: 20080405
  Serious: Yes (Other)
  Sender: FDA-Public Use
  Company Number: GB-PFIZER INC-2007102088

PATIENT
  Sex: Male

DRUGS (1)
  1. EPANUTIN SUSPENSION [Suspect]
     Indication: EPILEPSY
     Route: 048

REACTIONS (1)
  - PNEUMONIA ASPIRATION [None]
